FAERS Safety Report 9490391 (Version 1)
Quarter: 2013Q3

REPORT INFORMATION
  Report Type: Spontaneous
  Country: US (occurrence: US)
  Receive Date: 20130830
  Receipt Date: 20130830
  Transmission Date: 20140515
  Serious: Yes (Hospitalization)
  Sender: FDA-Public Use
  Company Number: US-BRISTOL-MYERS SQUIBB COMPANY-19199991

PATIENT
  Age: 77 Year
  Sex: Male
  Weight: 78.46 kg

DRUGS (1)
  1. ELIQUIS [Suspect]

REACTIONS (2)
  - Arthritis [Unknown]
  - Bone cyst [Unknown]
